FAERS Safety Report 10261172 (Version 1)
Quarter: 2014Q2

REPORT INFORMATION
  Report Type: Spontaneous
  Country: DE (occurrence: DE)
  Receive Date: 20140626
  Receipt Date: 20140626
  Transmission Date: 20141212
  Serious: Yes (Other)
  Sender: FDA-Public Use
  Company Number: DE-JNJFOC-20140616606

PATIENT
  Sex: Female

DRUGS (7)
  1. XARELTO [Suspect]
     Indication: CARDIAC DISORDER
     Route: 048
  2. FENTANYL [Suspect]
     Indication: OSTEOPOROSIS
     Route: 062
  3. FENTANYL [Suspect]
     Indication: PAIN
     Route: 062
  4. RAMILICH [Concomitant]
     Route: 065
  5. METOHEXAL SUCC [Concomitant]
     Route: 065
  6. TORASEMID [Concomitant]
     Route: 065
  7. METHIZOL [Concomitant]
     Route: 065

REACTIONS (3)
  - Nausea [Recovered/Resolved]
  - Dizziness [Recovered/Resolved]
  - Presyncope [Recovered/Resolved]
